FAERS Safety Report 18699616 (Version 2)
Quarter: 2023Q4

REPORT INFORMATION
  Report Type: Spontaneous
  Country: RO (occurrence: RO)
  Receive Date: 20210105
  Receipt Date: 20231108
  Transmission Date: 20240110
  Serious: Yes (Other)
  Sender: FDA-Public Use
  Company Number: RO-ACCORD-198616

PATIENT
  Age: 50 Year
  Sex: Female

DRUGS (6)
  1. CAPECITABINE [Suspect]
     Active Substance: CAPECITABINE
     Indication: Neurofibromatosis
     Dosage: ON DAYS 1-14 BID?4 CYCLE
  2. TEMOZOLOMIDE [Suspect]
     Active Substance: TEMOZOLOMIDE
     Indication: Neurofibromatosis
     Dosage: ON DAYS 10-14 EVERY 28 DAYS?4 CYCLE
  3. LANREOTIDE ACETATE [Suspect]
     Active Substance: LANREOTIDE ACETATE
     Indication: Neurofibromatosis
     Dosage: EVERY 28 DAYS
  4. CAPECITABINE [Suspect]
     Active Substance: CAPECITABINE
     Indication: Somatostatinoma
     Dosage: ON DAYS 1-14
  5. TEMOZOLOMIDE [Suspect]
     Active Substance: TEMOZOLOMIDE
     Indication: Somatostatinoma
     Dosage: ON DAYS 10-14 EVERY 28 DAYS
  6. LANREOTIDE ACETATE [Suspect]
     Active Substance: LANREOTIDE ACETATE
     Indication: Neurofibromatosis
     Dosage: EVERY 28 DAYS

REACTIONS (3)
  - Thrombocytopenia [Unknown]
  - Off label use [Unknown]
  - Palmar-plantar erythrodysaesthesia syndrome [Unknown]
